FAERS Safety Report 17947067 (Version 1)
Quarter: 2020Q2

REPORT INFORMATION
  Report Type: Spontaneous
  Country: DE (occurrence: DE)
  Receive Date: 20200625
  Receipt Date: 20200625
  Transmission Date: 20200714
  Serious: Yes (Hospitalization, Other)
  Sender: FDA-Public Use
  Company Number: DE-PFIZER INC-2020245551

PATIENT
  Age: 69 Year
  Sex: Male

DRUGS (11)
  1. LEVOTHYROXIN-NATRIUM [Concomitant]
     Active Substance: LEVOTHYROXINE SODIUM
     Dosage: 50 ?G, 1-0-0-0
  2. RAMIPRIL. [Suspect]
     Active Substance: RAMIPRIL
     Dosage: 10 MG, 1X/DAY
     Route: 065
  3. BISOPROLOL FUMARATE. [Suspect]
     Active Substance: BISOPROLOL FUMARATE
     Dosage: 5 MG, 1X/DAY
     Route: 065
  4. PANTOPRAZOLE [Concomitant]
     Active Substance: PANTOPRAZOLE
     Dosage: 40 MG, 1-0-0-0
  5. CALCIUM/COLECALCIFEROL [Concomitant]
     Active Substance: CALCIUM\CHOLECALCIFEROL
     Dosage: 600|400 MG/IE, 1-0-0-0, KAPSELN
  6. ACETYLSALICYLIC ACID [Concomitant]
     Active Substance: ASPIRIN
     Dosage: 100 MG, 0-1-0-0
  7. METAMIZOLE [Concomitant]
     Active Substance: METAMIZOLE
     Dosage: 2X30, DROPS
  8. FOLIC ACID. [Concomitant]
     Active Substance: FOLIC ACID
     Dosage: 5 MG, 1-0-0-0
  9. ACLIDINIUM BROMIDE/FORMOTEROL FUMARATE [Concomitant]
     Active Substance: ACLIDINIUM BROMIDE\FORMOTEROL FUMARATE
     Dosage: 343.39|12 ?G, 1-0-1-0, INHALATIONSPULVER
  10. TORASEMIDE [Concomitant]
     Active Substance: TORSEMIDE
     Dosage: 5 MG, 1-0-0-0
  11. NALOXON/TILIDIN [Concomitant]
     Dosage: 4|50 MG, 1-0-1-0

REACTIONS (9)
  - Cachexia [Unknown]
  - Fall [Unknown]
  - General physical health deterioration [Unknown]
  - Cough [Unknown]
  - Dyspnoea [Unknown]
  - Pallor [Unknown]
  - Tachypnoea [Unknown]
  - Productive cough [Unknown]
  - Musculoskeletal pain [Unknown]
